FAERS Safety Report 6803048-2 (Version None)
Quarter: 2010Q2

REPORT INFORMATION
  Report Type: 
  Country: None (occurrence: None)
  Receive Date: 20100628
  Receipt Date: 20100622
  Transmission Date: 20101027
  Serious: Yes (Death)
  Sender: FDA-Public Use
  Company Number: US-ASTRAZENECA-2010SE29123

PATIENT
  Age: 71 Year
  Sex: Male

DRUGS (2)
  1. ZOLADEX [Suspect]
     Indication: PROSTATE CANCER
     Dosage: MONTH
     Route: 058
  2. LANTUS [Concomitant]
     Indication: TYPE 1 DIABETES MELLITUS
     Dates: end: 20061102

REACTIONS (1)
  - MYOCARDIAL INFARCTION [None]
